FAERS Safety Report 8174989-1 (Version None)
Quarter: 2012Q1

REPORT INFORMATION
  Report Type: 
  Country: None (occurrence: None)
  Receive Date: 20120229
  Receipt Date: 20120220
  Transmission Date: 20120608
  Serious: Yes (Hospitalization, Other)
  Sender: FDA-Public Use
  Company Number: PHHY2012FR015892

PATIENT
  Sex: Female

DRUGS (4)
  1. AMANTADINE HCL [Suspect]
     Dosage: UNK
     Dates: end: 20120201
  2. TEGRETOL [Suspect]
     Dosage: 200 MG, UNK
     Dates: end: 20120201
  3. GABAPENTIN [Suspect]
     Dosage: UNK
     Dates: end: 20120201
  4. TYSABRI [Suspect]
     Dosage: 11 DF, UNK
     Dates: start: 20110414, end: 20120202

REACTIONS (9)
  - THROMBOCYTOPENIA [None]
  - GASTROENTERITIS [None]
  - PANCYTOPENIA [None]
  - ASPARTATE AMINOTRANSFERASE INCREASED [None]
  - GAIT DISTURBANCE [None]
  - ALANINE AMINOTRANSFERASE INCREASED [None]
  - GAMMA-GLUTAMYLTRANSFERASE INCREASED [None]
  - NORMOCHROMIC NORMOCYTIC ANAEMIA [None]
  - LEUKOPENIA [None]
